FAERS Safety Report 8093261-1 (Version None)
Quarter: 2012Q1

REPORT INFORMATION
  Report Type: 
  Country: None (occurrence: None)
  Receive Date: 20120128
  Receipt Date: 20110913
  Transmission Date: 20120608
  Serious: No
  Sender: FDA-Public Use
  Company Number: US-ABBOTT-11P-163-0730926-00

PATIENT
  Age: 43 Year
  Sex: Female

DRUGS (2)
  1. VITAMIN D [Concomitant]
     Indication: PRODUCT USED FOR UNKNOWN INDICATION
  2. HUMIRA [Suspect]
     Indication: PSORIASIS
     Dates: start: 20110423

REACTIONS (7)
  - RASH PRURITIC [None]
  - DERMATITIS [None]
  - RASH PUSTULAR [None]
  - PRURITUS [None]
  - RASH PAPULAR [None]
  - ERYTHEMA [None]
  - PSORIASIS [None]
